FAERS Safety Report 5465717-9 (Version None)
Quarter: 2007Q3

REPORT INFORMATION
  Report Type: 
  Country: None (occurrence: None)
  Receive Date: 20070924
  Receipt Date: 20070919
  Transmission Date: 20080115
  Serious: Yes (Other)
  Sender: FDA-Public Use
  Company Number: GB-MERCK-0709GBR00098

PATIENT
  Age: 68 Year
  Sex: Female

DRUGS (7)
  1. ZETIA [Suspect]
     Indication: HYPERCHOLESTEROLAEMIA
     Route: 048
     Dates: start: 20070301, end: 20070301
  2. AMLODIPINE BESYLATE [Concomitant]
     Route: 065
  3. ASPIRIN [Concomitant]
     Route: 065
  4. ACETAMINOPHEN AND CODEINE PHOSPHATE [Concomitant]
     Route: 065
  5. ISOSORBIDE MONONITRATE [Concomitant]
     Route: 065
  6. OMEPRAZOLE [Concomitant]
     Route: 065
  7. LEVOTHYROXINE SODIUM [Concomitant]
     Route: 065

REACTIONS (2)
  - DISCOMFORT [None]
  - LICHEN PLANUS [None]
